FAERS Safety Report 5902693-6 (Version None)
Quarter: 2008Q3

REPORT INFORMATION
  Report Type: 
  Country: None (occurrence: None)
  Receive Date: 20080930
  Receipt Date: 20080918
  Transmission Date: 20090109
  Serious: Yes (Death, Congenital Anomaly)
  Sender: FDA-Public Use
  Company Number: GB-RANBAXY-2007RR-10505

PATIENT
  Age: 21 Week
  Weight: 0.117 kg

DRUGS (3)
  1. ENALAPRIL MALEATE TABLETS 10MG [Suspect]
     Indication: HYPERTENSION
     Dosage: 10 MG, QD
     Route: 064
     Dates: start: 20070201, end: 20070401
  2. LABETALOL HCL [Concomitant]
     Indication: HYPERTENSION
     Dosage: 100 MG, UNK
     Route: 064
     Dates: start: 20070626
  3. METHYLDOPA [Concomitant]
     Indication: HYPERTENSION
     Dosage: UNK
     Route: 064
     Dates: start: 20070417

REACTIONS (6)
  - FOETAL CARDIAC DISORDER [None]
  - FOETAL GROWTH RETARDATION [None]
  - MULTIPLE CONGENITAL ABNORMALITIES [None]
  - OLIGOHYDRAMNIOS [None]
  - PLACENTAL DISORDER [None]
  - PULMONARY MALFORMATION [None]
